FAERS Safety Report 9732669 (Version 1)
Quarter: 2013Q4

REPORT INFORMATION
  Report Type: Spontaneous
  Country: GB (occurrence: GB)
  Receive Date: 20131204
  Receipt Date: 20131204
  Transmission Date: 20140711
  Serious: Yes (Other)
  Sender: FDA-Public Use
  Company Number: GB-TEVA-447406ISR

PATIENT
  Age: 23 Year
  Sex: Female

DRUGS (3)
  1. MODAFINIL [Suspect]
     Dosage: THE EXPOSURE PERIOUD IS UNCLEAR
  2. LOFEPRAMIN [Concomitant]
  3. CONTRACEPTIVES [Concomitant]
     Indication: CONTRACEPTION
     Route: 048

REACTIONS (2)
  - Abortion spontaneous [Unknown]
  - Pregnancy on oral contraceptive [Unknown]
